FAERS Safety Report 5825065-1 (Version None)
Quarter: 2008Q3

REPORT INFORMATION
  Report Type: 
  Country: None (occurrence: None)
  Receive Date: 20080729
  Receipt Date: 20080728
  Transmission Date: 20090109
  Serious: Yes (Hospitalization)
  Sender: FDA-Public Use
  Company Number: DE-BRISTOL-MYERS SQUIBB COMPANY-14226872

PATIENT
  Age: 25 Year
  Sex: Male

DRUGS (3)
  1. ABILIFY [Suspect]
     Dosage: INITIAL DOSE 28SEP07-9OCT07 5MG ORAL; 10OCT07-26OCT07-15 MG ; 27OCT07-ONGOING 20MG ORAL.
     Route: 048
     Dates: start: 20070928
  2. ZYPREXA [Concomitant]
     Route: 048
     Dates: end: 20071011
  3. CIPRAMIL [Concomitant]
     Dosage: THRPY:UNKWN-09DEC07,RESTARTED ON 10DEC07 DAILY DOSE: 20MG.
     Route: 048

REACTIONS (1)
  - EJACULATION DISORDER [None]
